FAERS Safety Report 7889575-8 (Version None)
Quarter: 2011Q4

REPORT INFORMATION
  Report Type: 
  Country: None (occurrence: None)
  Receive Date: 20111103
  Receipt Date: 20110506
  Transmission Date: 20120403
  Serious: No
  Sender: FDA-Public Use
  Company Number: US-BRISTOL-MYERS SQUIBB COMPANY-15678873

PATIENT
  Age: 54 Year
  Sex: Female
  Weight: 49 kg

DRUGS (6)
  1. XANAX [Concomitant]
     Dosage: SINGULAR AT NIGHT
  2. KENALOG-40 [Suspect]
     Indication: RHINITIS ALLERGIC
     Dosage: STARTED:28JUL10
     Route: 030
     Dates: start: 20100728
  3. CLARINEX [Concomitant]
     Dosage: AT MORNING
  4. NASONEX [Concomitant]
     Dosage: SINGULAR AT NIGHT
  5. KENALOG-40 [Suspect]
     Indication: BRONCHITIS
     Dosage: STARTED:28JUL10
     Route: 030
     Dates: start: 20100728
  6. SINGULAIR [Concomitant]
     Dosage: AT NIGHT

REACTIONS (1)
  - INJECTION SITE ATROPHY [None]
